FAERS Safety Report 12118759 (Version 1)
Quarter: 2016Q1

REPORT INFORMATION
  Report Type: Spontaneous
  Country: CA (occurrence: CA)
  Receive Date: 20160226
  Receipt Date: 20160226
  Transmission Date: 20160526
  Serious: Yes (Life-Threatening, Other)
  Sender: FDA-Public Use
  Company Number: CA-TEVA-637482ACC

PATIENT
  Age: 62 Year
  Sex: Male
  Weight: 54 kg

DRUGS (4)
  1. TEVA-RISEDRONATE [Suspect]
     Active Substance: RISEDRONATE SODIUM
     Indication: OSTEOPOROSIS
     Route: 048
  2. CALCIUM [Concomitant]
     Active Substance: CALCIUM
  3. VITAMIN D [Concomitant]
     Active Substance: CHOLECALCIFEROL
  4. AVODART [Concomitant]
     Active Substance: DUTASTERIDE

REACTIONS (8)
  - Muscle rigidity [Recovering/Resolving]
  - Pain in extremity [Recovering/Resolving]
  - Blood sodium abnormal [Recovering/Resolving]
  - Muscle spasms [Recovering/Resolving]
  - Reaction to drug excipients [Recovering/Resolving]
  - Tendon disorder [Recovering/Resolving]
  - Paralysis [Recovering/Resolving]
  - Muscle twitching [Recovering/Resolving]
